FAERS Safety Report 13960528 (Version 1)
Quarter: 2017Q3

REPORT INFORMATION
  Report Type: Spontaneous
  Country: US (occurrence: US)
  Receive Date: 20170912
  Receipt Date: 20170912
  Transmission Date: 20171128
  Serious: No
  Sender: FDA-Public Use
  Company Number: US-ALLERGAN-1671413US

PATIENT
  Sex: Female

DRUGS (1)
  1. LEXAPRO [Suspect]
     Active Substance: ESCITALOPRAM OXALATE
     Indication: BALANCE DISORDER
     Dosage: 10 MG, UNK
     Dates: end: 201610

REACTIONS (2)
  - Dizziness [Unknown]
  - Off label use [Unknown]
